FAERS Safety Report 9769343 (Version 2)
Quarter: 2013Q4

REPORT INFORMATION
  Report Type: Report from Study
  Country: DE (occurrence: DE)
  Receive Date: 20131218
  Receipt Date: 20131218
  Transmission Date: 20140711
  Serious: Yes (Hospitalization)
  Sender: FDA-Public Use
  Company Number: DE-ROCHE-1270881

PATIENT
  Sex: Male
  Weight: 98 kg

DRUGS (7)
  1. RITUXIMAB [Suspect]
     Indication: GRANULOMATOSIS WITH POLYANGIITIS
     Route: 042
     Dates: start: 20110622, end: 20120508
  2. PREDNISOLON [Suspect]
     Indication: GRANULOMATOSIS WITH POLYANGIITIS
     Route: 048
  3. AZATHIOPRIN [Concomitant]
     Indication: GRANULOMATOSIS WITH POLYANGIITIS
     Route: 048
  4. ENALAPRIL [Concomitant]
     Indication: HYPERTENSION
  5. AMLODIPIN [Concomitant]
     Indication: HYPERTENSION
  6. FENTANYL [Concomitant]
     Indication: PAIN
  7. NOVAMINSULFON [Concomitant]
     Indication: PAIN

REACTIONS (1)
  - Cataract [Recovering/Resolving]
